FAERS Safety Report 4516845-3 (Version None)
Quarter: 2004Q4

REPORT INFORMATION
  Report Type: 
  Country: None (occurrence: None)
  Receive Date: 20041202
  Receipt Date: 20041123
  Transmission Date: 20050328
  Serious: Yes (Hospitalization, Disabling)
  Sender: FDA-Public Use
  Company Number: GB-GLAXOSMITHKLINE-B0357909A

PATIENT
  Age: 75 Year
  Sex: Male
  Weight: 91 kg

DRUGS (11)
  1. AVANDIA [Suspect]
     Dosage: 8MG PER DAY
     Route: 048
     Dates: start: 20040201
  2. ASPIRIN [Concomitant]
     Dosage: 150MG PER DAY
     Route: 048
  3. CLOPIDOGREL [Concomitant]
     Dosage: 75MG PER DAY
     Route: 048
     Dates: start: 20041016, end: 20041031
  4. ISOSORBIDE MONONITRATE [Concomitant]
     Dosage: 40MG PER DAY
     Route: 048
     Dates: start: 20030801
  5. ATORVASTATIN CALCIUM [Concomitant]
     Dosage: 40MG PER DAY
     Route: 048
     Dates: start: 20040201, end: 20041101
  6. PAROXETINE HCL [Concomitant]
     Dosage: 20MG PER DAY
     Route: 048
     Dates: start: 19970101
  7. QUININE SULPHATE [Concomitant]
     Dosage: 300MG PER DAY
     Route: 048
  8. DILTIAZEM [Concomitant]
     Dosage: 60MG TWICE PER DAY
     Route: 048
     Dates: start: 20041001
  9. METFORMIN [Concomitant]
     Dosage: 1G PER DAY
     Route: 048
     Dates: start: 20010101
  10. AMILORIDE [Concomitant]
     Dosage: 5MG PER DAY
     Route: 048
     Dates: start: 20041102, end: 20041106
  11. FRUSEMIDE [Concomitant]
     Dosage: 40MG PER DAY
     Route: 048
     Dates: start: 20041102, end: 20041106

REACTIONS (4)
  - CEREBRAL INFARCTION [None]
  - CEREBROVASCULAR ACCIDENT [None]
  - DYSARTHRIA [None]
  - HEMIPARESIS [None]
